FAERS Safety Report 15545468 (Version 1)
Quarter: 2018Q4

REPORT INFORMATION
  Report Type: Spontaneous
  Country: US (occurrence: US)
  Receive Date: 20181024
  Receipt Date: 20181024
  Transmission Date: 20190205
  Serious: No
  Sender: FDA-Public Use
  Company Number: US-TEVA-2018-US-965738

PATIENT
  Sex: Female

DRUGS (3)
  1. CYCLOCAP (CICLOSPORIN) [Suspect]
     Active Substance: CYCLOSPORINE
     Route: 065
  2. CYCLOCAP (CICLOSPORIN) [Suspect]
     Active Substance: CYCLOSPORINE
     Route: 065
  3. CYCLOCAP (CICLOSPORIN) [Suspect]
     Active Substance: CYCLOSPORINE
     Indication: LICHEN PLANUS
     Route: 065
     Dates: start: 2016

REACTIONS (1)
  - Blood pressure increased [Recovered/Resolved]

NARRATIVE: CASE EVENT DATE: 2016
